FAERS Safety Report 11896865 (Version 1)
Quarter: 2016Q1

REPORT INFORMATION
  Report Type: Spontaneous
  Country: FR (occurrence: FR)
  Receive Date: 20160107
  Receipt Date: 20160107
  Transmission Date: 20160526
  Serious: Yes (Hospitalization, Other)
  Sender: FDA-Public Use
  Company Number: FR-GLAXOSMITHKLINE-FR2016GSK001642

PATIENT
  Age: 34 Year
  Sex: Male

DRUGS (5)
  1. TEVAGRASTIM [Suspect]
     Active Substance: FILGRASTIM
     Dosage: UNK
     Route: 048
     Dates: start: 20150622, end: 20150629
  2. ORACILLIN [Suspect]
     Active Substance: PENICILLIN V BENZATHINE
     Dosage: UNK
     Route: 048
     Dates: start: 20150622, end: 20150629
  3. LITAK [Suspect]
     Active Substance: CLADRIBINE
     Dosage: UNK
     Route: 058
     Dates: start: 20150615, end: 20150619
  4. WELLVONE [Suspect]
     Active Substance: ATOVAQUONE
     Dosage: UNK
     Route: 048
     Dates: start: 20150622, end: 20150629
  5. VALACICLOVIR [Suspect]
     Active Substance: VALACYCLOVIR HYDROCHLORIDE
     Dosage: UNK
     Route: 048
     Dates: start: 20150622, end: 20150629

REACTIONS (2)
  - Rash maculo-papular [Recovered/Resolved]
  - Toxic skin eruption [Recovered/Resolved]

NARRATIVE: CASE EVENT DATE: 20150626
